FAERS Safety Report 4436052-2 (Version None)
Quarter: 2004Q3

REPORT INFORMATION
  Report Type: 
  Country: None (occurrence: None)
  Receive Date: 20040826
  Receipt Date: 20040817
  Transmission Date: 20050211
  Serious: Yes (Death)
  Sender: FDA-Public Use
  Company Number: 2004US000959

PATIENT
  Age: 50 Year
  Sex: Female

DRUGS (2)
  1. PROGRAF [Suspect]
     Indication: PROPHYLAXIS AGAINST TRANSPLANT REJECTION
  2. METHOTREXATE [Concomitant]

REACTIONS (2)
  - DRUG TOXICITY [None]
  - VENOOCCLUSIVE LIVER DISEASE [None]
